FAERS Safety Report 10712051 (Version 1)
Quarter: 2015Q1

REPORT INFORMATION
  Report Type: Spontaneous
  Country: US (occurrence: US)
  Receive Date: 20150114
  Receipt Date: 20150114
  Transmission Date: 20150721
  Serious: No
  Sender: FDA-Public Use
  Company Number: US-ALLERGAN-1403268US

PATIENT
  Age: 50 Year
  Sex: Female

DRUGS (2)
  1. ACZONE [Suspect]
     Active Substance: DAPSONE
     Indication: ACNE
     Dosage: UNK UNK, SINGLE
     Route: 061
     Dates: start: 201402, end: 201402
  2. TRETINOIN. [Concomitant]
     Active Substance: TRETINOIN
     Indication: SKIN WRINKLING
     Dosage: UNK UNK, SINGLE
     Route: 061

REACTIONS (2)
  - Pruritus [Recovered/Resolved]
  - Dry skin [Recovered/Resolved]
